FAERS Safety Report 7607121-0 (Version None)
Quarter: 2011Q3

REPORT INFORMATION
  Report Type: 
  Country: None (occurrence: None)
  Receive Date: 20110713
  Receipt Date: 20110629
  Transmission Date: 20111222
  Serious: Yes (Hospitalization, Other)
  Sender: FDA-Public Use
  Company Number: US-BAYER-2011-034642

PATIENT
  Age: 26 Year
  Sex: Female
  Weight: 57.143 kg

DRUGS (5)
  1. YASMIN [Suspect]
     Indication: ACNE
  2. DROSPIRENONE AND ETHINYL ESTRADIOL [Suspect]
     Indication: ACNE
  3. TRETINOIN [Concomitant]
  4. YASMIN [Suspect]
     Indication: CONTRACEPTION
     Dosage: UNK
     Dates: start: 20030401, end: 20090601
  5. DROSPIRENONE AND ETHINYL ESTRADIOL [Suspect]
     Indication: CONTRACEPTION
     Dosage: UNK
     Dates: start: 20090627, end: 20090714

REACTIONS (6)
  - PULMONARY HYPERTENSION [None]
  - DYSPNOEA [None]
  - CHEST DISCOMFORT [None]
  - HEART RATE INCREASED [None]
  - PULMONARY EMBOLISM [None]
  - VISION BLURRED [None]
